FAERS Safety Report 22027824 (Version 1)
Quarter: 2023Q1

REPORT INFORMATION
  Report Type: Spontaneous
  Country: EG (occurrence: EG)
  Receive Date: 20230223
  Receipt Date: 20230223
  Transmission Date: 20230418
  Serious: Yes (Death, Other)
  Sender: FDA-Public Use
  Company Number: EG-GILEAD-2023-0617848

PATIENT
  Age: 65 Year
  Sex: Male
  Weight: 65 kg

DRUGS (2)
  1. SOVALDI [Suspect]
     Active Substance: SOFOSBUVIR
     Indication: Hepatitis C
     Dosage: 400 MG
     Route: 065
     Dates: start: 2019
  2. RIBAVIRIN [Concomitant]
     Active Substance: RIBAVIRIN
     Route: 048

REACTIONS (2)
  - Hepatic cancer [Fatal]
  - Hepatic failure [Fatal]
